FAERS Safety Report 6370288-9 (Version None)
Quarter: 2009Q3

REPORT INFORMATION
  Report Type: 
  Country: None (occurrence: None)
  Receive Date: 20090921
  Receipt Date: 20090921
  Transmission Date: 20100115
  Serious: Yes (Other)
  Sender: FDA-Public Use
  Company Number: None

PATIENT
  Sex: Male
  Weight: 81.6475 kg

DRUGS (2)
  1. CEFDINIR [Suspect]
     Indication: EAR INFECTION
     Dosage: TWO BY MOUTH DAILY  (4 CAPSULES)
     Route: 048
     Dates: start: 20090902, end: 20090903
  2. CEFDINIR [Suspect]
     Indication: SINUSITIS
     Dosage: TWO BY MOUTH DAILY  (4 CAPSULES)
     Route: 048
     Dates: start: 20090902, end: 20090903

REACTIONS (1)
  - DIARRHOEA [None]
